FAERS Safety Report 8573334-7 (Version None)
Quarter: 2012Q2

REPORT INFORMATION
  Report Type: 
  Country: None (occurrence: None)
  Receive Date: 20120423
  Receipt Date: 20090708
  Transmission Date: 20120825
  Serious: Yes (Other)
  Sender: FDA-Public Use
  Company Number: PHEH2009US07283

PATIENT
  Sex: Female

DRUGS (1)
  1. EXJADE [Suspect]
     Dosage: 500 MG, TID, ORAL
     Route: 048

REACTIONS (2)
  - DRUG INTOLERANCE [None]
  - BLOOD CREATININE INCREASED [None]
